FAERS Safety Report 10088918 (Version 4)
Quarter: 2014Q4

REPORT INFORMATION
  Report Type: Spontaneous
  Country: DE (occurrence: DE)
  Receive Date: 20140421
  Receipt Date: 20141125
  Transmission Date: 20150528
  Serious: Yes (Hospitalization, Other)
  Sender: FDA-Public Use
  Company Number: DE-JNJFOC-20140410706

PATIENT
  Age: 65 Year
  Sex: Male
  Weight: 100 kg

DRUGS (6)
  1. MARCUMAR [Concomitant]
     Active Substance: PHENPROCOUMON
     Indication: ATRIAL FIBRILLATION
     Route: 065
     Dates: start: 200601, end: 201202
  2. XARELTO [Suspect]
     Active Substance: RIVAROXABAN
     Indication: ATRIAL FIBRILLATION
     Route: 048
     Dates: start: 20120214
  3. DELMUNO [Concomitant]
     Active Substance: FELODIPINE
     Dosage: 5/5 MG, 1-0-0
     Route: 065
  4. XARELTO [Suspect]
     Active Substance: RIVAROXABAN
     Indication: CEREBROVASCULAR ACCIDENT PROPHYLAXIS
     Route: 048
     Dates: start: 20120214
  5. BELOC ZOK [Concomitant]
     Active Substance: METOPROLOL SUCCINATE
     Dosage: 1-0-0, 95 MG QD
     Route: 065
  6. PRADAXA [Concomitant]
     Active Substance: DABIGATRAN ETEXILATE MESYLATE
     Indication: ATRIAL FIBRILLATION
     Route: 065
     Dates: start: 201111, end: 201202

REACTIONS (9)
  - Arthralgia [Unknown]
  - Urethral haemorrhage [Unknown]
  - Fall [Recovered/Resolved]
  - Contusion [Unknown]
  - Erythema [Unknown]
  - Off label use [Unknown]
  - Subcutaneous haematoma [Recovered/Resolved]
  - Joint injury [Recovered/Resolved]
  - Abdominal wall haematoma [Recovered/Resolved]

NARRATIVE: CASE EVENT DATE: 20130918
